FAERS Safety Report 15808414 (Version 1)
Quarter: 2019Q1

REPORT INFORMATION
  Report Type: Spontaneous
  Country: GR (occurrence: GR)
  Receive Date: 20190110
  Receipt Date: 20190110
  Transmission Date: 20190417
  Serious: Yes (Hospitalization)
  Sender: FDA-Public Use
  Company Number: GR-ALLERGAN-1900879US

PATIENT
  Age: 50 Year
  Sex: Female

DRUGS (5)
  1. OZURDEX [Suspect]
     Active Substance: DEXAMETHASONE
     Indication: MACULAR OEDEMA
     Dosage: 0.7 MG, SINGLE
     Route: 031
  2. 10% SOLUTION [Concomitant]
  3. 5% SOLUTION [Concomitant]
  4. OZURDEX [Suspect]
     Active Substance: DEXAMETHASONE
     Indication: RETINAL VEIN OCCLUSION
     Dosage: 0.7 MG, SINGLE
     Route: 031
  5. POVIDONE-IODINE. [Concomitant]
     Active Substance: POVIDONE-IODINE

REACTIONS (1)
  - Staphylococcal infection [Recovered/Resolved]

NARRATIVE: CASE EVENT DATE: 2013
